FAERS Safety Report 5717570-3 (Version None)
Quarter: 2008Q2

REPORT INFORMATION
  Report Type: 
  Country: None (occurrence: None)
  Receive Date: 20080421
  Receipt Date: 20071026
  Transmission Date: 20081010
  Serious: Yes (Hospitalization)
  Sender: FDA-Public Use
  Company Number: WAES 0710USA05756

PATIENT
  Age: 48 Year
  Sex: Female
  Weight: 72.5755 kg

DRUGS (2)
  1. SINGULAIR [Suspect]
     Indication: HYPERSENSITIVITY
     Dosage: 10 MG/DAILY/PO
     Route: 048
     Dates: start: 20030301, end: 20050301
  2. ASPIRIN [Concomitant]

REACTIONS (5)
  - DRUG HYPERSENSITIVITY [None]
  - EYE IRRITATION [None]
  - EYE SWELLING [None]
  - HOSPITALISATION [None]
  - RASH [None]
